FAERS Safety Report 5837646-X (Version None)
Quarter: 2008Q3

REPORT INFORMATION
  Report Type: 
  Country: None (occurrence: None)
  Receive Date: 20080807
  Receipt Date: 20080801
  Transmission Date: 20090109
  Serious: Yes (Other)
  Sender: FDA-Public Use
  Company Number: PHHY2008JP03296

PATIENT
  Sex: Male
  Weight: 51 kg

DRUGS (9)
  1. TEGRETOL [Suspect]
     Indication: TRIGEMINAL NEURALGIA
     Dosage: 300 MG/DAY
     Route: 048
     Dates: start: 20040528, end: 20071012
  2. TEGRETOL [Suspect]
     Dosage: 300MG/ DAY
     Route: 048
     Dates: start: 20080124
  3. LOXONIN [Suspect]
     Indication: TRIGEMINAL NEURALGIA
     Dosage: 180 MG/ DAY
     Route: 048
     Dates: start: 20051116, end: 20060201
  4. CYANOCOBALAMIN [Concomitant]
     Indication: TRIGEMINAL NEURALGIA
     Dosage: 1500 UG, UNK
     Route: 048
     Dates: start: 20050803
  5. GASTER OD [Concomitant]
     Indication: GASTROINTESTINAL HAEMORRHAGE
     Dosage: 20 MG, UNK
     Route: 048
     Dates: start: 20060201
  6. LANIRAPID [Concomitant]
     Indication: ATRIAL FIBRILLATION
     Dosage: 0.05 MG, UNK
     Route: 048
     Dates: start: 20060314
  7. LEVOTHYROXINE SODIUM [Concomitant]
     Indication: HYPOTHYROIDISM
     Dosage: 5 MG, UNK
     Route: 048
     Dates: start: 20060413, end: 20071001
  8. FOSAMAX [Concomitant]
     Indication: BONE DENSITY DECREASED
     Dosage: 5 MG, UNK
     Route: 048
     Dates: start: 20070118
  9. ROCALTROL [Concomitant]
     Indication: BONE DENSITY DECREASED
     Dosage: 1 MG, UNK
     Route: 048
     Dates: start: 20071002

REACTIONS (16)
  - BACK PAIN [None]
  - BLOOD CORTICOTROPHIN ABNORMAL [None]
  - BLOOD CORTISOL INCREASED [None]
  - BONE DENSITY DECREASED [None]
  - BONE METABOLISM DISORDER [None]
  - COLON OPERATION [None]
  - HYPOCALCAEMIA [None]
  - HYPOPHOSPHATAEMIA [None]
  - HYPOPITUITARISM [None]
  - HYPOTHALAMO-PITUITARY DISORDER [None]
  - HYPOTHYROIDISM [None]
  - OSTEOMALACIA [None]
  - THYROID FUNCTION TEST ABNORMAL [None]
  - THYROXINE DECREASED [None]
  - TRI-IODOTHYRONINE DECREASED [None]
  - VITAMIN D DEFICIENCY [None]
